FAERS Safety Report 15534028 (Version 2)
Quarter: 2018Q4

REPORT INFORMATION
  Report Type: Spontaneous
  Country: US (occurrence: US)
  Receive Date: 20181019
  Receipt Date: 20181122
  Transmission Date: 20190205
  Serious: No
  Sender: FDA-Public Use
  Company Number: US-009507513-1810USA009119

PATIENT
  Sex: Female

DRUGS (1)
  1. NEXPLANON [Suspect]
     Active Substance: ETONOGESTREL
     Dosage: UNK
     Route: 059

REACTIONS (6)
  - Polymenorrhoea [Recovered/Resolved]
  - Eye swelling [Recovered/Resolved]
  - Retinal vascular thrombosis [Recovered/Resolved]
  - Eye contusion [Recovered/Resolved]
  - Eye movement disorder [Recovered/Resolved]
  - Hypertension [Recovered/Resolved]
